FAERS Safety Report 7557937-4 (Version None)
Quarter: 2011Q2

REPORT INFORMATION
  Report Type: 
  Country: None (occurrence: None)
  Receive Date: 20110620
  Receipt Date: 20110610
  Transmission Date: 20111010
  Serious: Yes (Hospitalization)
  Sender: FDA-Public Use
  Company Number: B0726012A

PATIENT
  Age: 39 Year
  Sex: Female

DRUGS (2)
  1. ZOLMITRIPTAN [Concomitant]
     Route: 048
  2. AMERGE [Suspect]
     Indication: MIGRAINE
     Route: 048

REACTIONS (1)
  - COLITIS ISCHAEMIC [None]
